FAERS Safety Report 8396232-0 (Version None)
Quarter: 2012Q2

REPORT INFORMATION
  Report Type: 
  Country: None (occurrence: None)
  Receive Date: 20120530
  Receipt Date: 20110722
  Transmission Date: 20120825
  Serious: No
  Sender: FDA-Public Use
  Company Number: US-ASTRAZENECA-2011SE53686

PATIENT
  Sex: Female

DRUGS (5)
  1. CALCIUM [Concomitant]
     Dosage: UNKNOWN
  2. THYROID THERAPY [Concomitant]
     Dosage: UNKNOWN
  3. PRILOSEC OTC [Suspect]
     Route: 048
     Dates: start: 20110622
  4. COUMADIN [Interacting]
     Dosage: UNKNOWN
  5. VITAMIN D [Concomitant]
     Dosage: UNKNOWN

REACTIONS (5)
  - PAIN IN EXTREMITY [None]
  - MUSCULAR WEAKNESS [None]
  - MUSCLE SPASMS [None]
  - LABELLED DRUG-DRUG INTERACTION MEDICATION ERROR [None]
  - PRURITUS [None]
